FAERS Safety Report 6988573-6 (Version None)
Quarter: 2010Q3

REPORT INFORMATION
  Report Type: 
  Country: None (occurrence: None)
  Receive Date: 20100916
  Receipt Date: 20100915
  Transmission Date: 20110219
  Serious: Yes (Hospitalization)
  Sender: FDA-Public Use
  Company Number: DE-BRISTOL-MYERS SQUIBB COMPANY-15262447

PATIENT
  Age: 74 Year
  Sex: Female
  Weight: 70 kg

DRUGS (7)
  1. ONGLYZA [Suspect]
     Indication: TYPE 2 DIABETES MELLITUS
     Route: 048
     Dates: start: 20100318
  2. MARCUMAR [Concomitant]
     Indication: ATRIAL FIBRILLATION
  3. METFORMIN [Concomitant]
     Indication: TYPE 2 DIABETES MELLITUS
     Route: 048
     Dates: start: 20050101
  4. BISOPROLOL [Concomitant]
     Indication: ATRIAL FIBRILLATION
     Route: 048
     Dates: start: 20010101
  5. PRESOMEN [Concomitant]
     Dates: start: 20010101
  6. ATACAND [Concomitant]
     Indication: HYPERTENSION
     Dates: start: 20010101
  7. LANITOP [Concomitant]
     Indication: ATRIAL FIBRILLATION
     Dates: start: 20010101

REACTIONS (1)
  - CEREBRAL ISCHAEMIA [None]
